FAERS Safety Report 7723524-8 (Version None)
Quarter: 2011Q3

REPORT INFORMATION
  Report Type: 
  Country: None (occurrence: None)
  Receive Date: 20110826
  Receipt Date: 20110818
  Transmission Date: 20111222
  Serious: Yes (Hospitalization)
  Sender: FDA-Public Use
  Company Number: LTI2011A00244

PATIENT
  Age: 80 Year
  Sex: Female

DRUGS (8)
  1. MODOPAR (LEVODOPA, BENSERAZIDE HYDROCHLORIDE) [Concomitant]
  2. TRIATEC (CODEINE PHOPSHATE, PARACETAMOL) [Concomitant]
  3. ARICEPT [Concomitant]
  4. PREVISCAN (PENTOXIFYLLINE) [Concomitant]
  5. ACTOS [Suspect]
     Indication: TYPE 2 DIABETES MELLITUS
     Dosage: 30 MG (30 MG.1-2), ORAL
     Route: 048
     Dates: start: 20090101, end: 20110517
  6. MEMANTINE HCL [Concomitant]
  7. BISOPROLOL FUMARATE [Concomitant]
  8. METFORMIN HCL [Suspect]
     Indication: TYPE 2 DIABETES MELLITUS
     Dosage: 2 DF (1 DR, 2 IN 1 D), ORAL
     Route: 048
     Dates: start: 20090101, end: 20110517

REACTIONS (3)
  - DEPRESSED LEVEL OF CONSCIOUSNESS [None]
  - INTERNATIONAL NORMALISED RATIO INCREASED [None]
  - HYPOGLYCAEMIA [None]
